FAERS Safety Report 12787341 (Version 1)
Quarter: 2016Q3

REPORT INFORMATION
  Report Type: Spontaneous
  Country: US (occurrence: US)
  Receive Date: 20160928
  Receipt Date: 20160928
  Transmission Date: 20161109
  Serious: No
  Sender: FDA-Public Use
  Company Number: US-TEVA-689860ACC

PATIENT
  Age: 16 Year
  Sex: Female
  Weight: 56.75 kg

DRUGS (1)
  1. PLAN B ONE-STEP [Suspect]
     Active Substance: LEVONORGESTREL
     Indication: POST COITAL CONTRACEPTION
     Dates: start: 20160806, end: 20160806

REACTIONS (6)
  - Vaginal haemorrhage [Recovered/Resolved]
  - Dysmenorrhoea [Unknown]
  - Prescription drug used without a prescription [Unknown]
  - Vaginal discharge [Not Recovered/Not Resolved]
  - Intentional product misuse [Unknown]
  - Vaginal haemorrhage [Recovered/Resolved]

NARRATIVE: CASE EVENT DATE: 20160813
